FAERS Safety Report 12625867 (Version 4)
Quarter: 2017Q3

REPORT INFORMATION
  Report Type: Report from Study
  Country: JP (occurrence: JP)
  Receive Date: 20160805
  Receipt Date: 20170728
  Transmission Date: 20171127
  Serious: Yes (Life-Threatening, Other)
  Sender: FDA-Public Use
  Company Number: JP-ASTELLAS-2009JP001535

PATIENT
  Age: 30 Year
  Sex: Female
  Weight: 50 kg

DRUGS (47)
  1. PREDNISOLONE. [Suspect]
     Active Substance: PREDNISOLONE
     Route: 048
     Dates: start: 20080619, end: 20080625
  2. PREDNISOLONE. [Suspect]
     Active Substance: PREDNISOLONE
     Route: 048
     Dates: start: 20110207, end: 20110218
  3. ONEALFA [Concomitant]
     Active Substance: ALFACALCIDOL
     Indication: PROPHYLAXIS
     Dosage: 0.5 ?G, ONCE DAILY
     Route: 048
     Dates: end: 20100723
  4. ATELEC [Concomitant]
     Active Substance: CILNIDIPINE
     Indication: PRODUCT USED FOR UNKNOWN INDICATION
     Route: 048
     Dates: end: 20080804
  5. ALFAROL [Concomitant]
     Active Substance: ALFACALCIDOL
     Indication: PROPHYLAXIS
     Dosage: 1.0 ?G, ONCE DAILY
     Route: 048
     Dates: start: 20110222, end: 20120805
  6. GASTER [Suspect]
     Active Substance: FAMOTIDINE
     Indication: PROPHYLAXIS
     Route: 048
     Dates: start: 20110219, end: 20170209
  7. PREDNISOLONE. [Suspect]
     Active Substance: PREDNISOLONE
     Route: 048
     Dates: start: 20110715, end: 20131118
  8. ORADOL                             /00093302/ [Concomitant]
     Indication: PHARYNGITIS
     Dosage: 2.0 MG, ONCE DAILY
     Route: 048
     Dates: start: 20081127, end: 20081201
  9. PREDNISOLONE. [Suspect]
     Active Substance: PREDNISOLONE
     Route: 048
     Dates: start: 20090205, end: 20110206
  10. PREDNISOLONE. [Suspect]
     Active Substance: PREDNISOLONE
     Route: 048
     Dates: start: 20110325, end: 20110414
  11. PREDNISOLONE. [Suspect]
     Active Substance: PREDNISOLONE
     Route: 048
     Dates: start: 20110415, end: 20110714
  12. GASTER [Concomitant]
     Active Substance: FAMOTIDINE
     Indication: PROPHYLAXIS
     Route: 048
     Dates: end: 20100723
  13. ATELEC [Concomitant]
     Active Substance: CILNIDIPINE
     Route: 048
     Dates: start: 20080805, end: 20080825
  14. EDIROL [Concomitant]
     Active Substance: ELDECALCITOL
     Indication: PROPHYLAXIS
     Dosage: 0.75 ?G, ONCE DAILY
     Route: 048
     Dates: start: 20120806
  15. PRALIA [Concomitant]
     Active Substance: DENOSUMAB
     Indication: ANKLE FRACTURE
     Dosage: 60 MG, ONCE IN 6 MONTHS
     Route: 058
     Dates: start: 20151218
  16. PREDNISOLONE. [Suspect]
     Active Substance: PREDNISOLONE
     Route: 048
     Dates: start: 20080717, end: 20080825
  17. PREDNISOLONE. [Suspect]
     Active Substance: PREDNISOLONE
     Route: 048
     Dates: start: 20080826, end: 20080922
  18. PREDNISOLONE. [Suspect]
     Active Substance: PREDNISOLONE
     Route: 048
     Dates: start: 20110219, end: 20110307
  19. PREDNISOLONE. [Suspect]
     Active Substance: PREDNISOLONE
     Route: 048
     Dates: start: 20131119
  20. LASIX [Concomitant]
     Active Substance: FUROSEMIDE
     Indication: LUPUS NEPHRITIS
     Route: 048
     Dates: start: 20110308, end: 20110513
  21. DASEN [Concomitant]
     Active Substance: SERRAPEPTASE
     Indication: PHARYNGITIS
     Route: 048
     Dates: start: 20081127, end: 20081201
  22. LASIX [Concomitant]
     Active Substance: FUROSEMIDE
     Route: 048
     Dates: start: 20110514, end: 20111108
  23. MEVALOTIN [Concomitant]
     Active Substance: PRAVASTATIN SODIUM
     Indication: PROPHYLAXIS
     Route: 048
     Dates: start: 20120116
  24. TACROLIMUS. [Suspect]
     Active Substance: TACROLIMUS
     Indication: LUPUS NEPHRITIS
     Route: 048
     Dates: start: 20080520
  25. PREDNISOLONE. [Suspect]
     Active Substance: PREDNISOLONE
     Route: 048
     Dates: start: 20080923, end: 20090204
  26. PREDNISOLONE. [Suspect]
     Active Substance: PREDNISOLONE
     Route: 048
     Dates: start: 20110308, end: 20110324
  27. BAYASPIRIN [Concomitant]
     Active Substance: ASPIRIN
     Indication: CARDIOVASCULAR EVENT PROPHYLAXIS
     Route: 048
     Dates: start: 20091009, end: 20110205
  28. BAYASPIRIN [Concomitant]
     Active Substance: ASPIRIN
     Route: 048
     Dates: start: 20120806
  29. COMELIAN [Concomitant]
     Active Substance: DILAZEP
     Indication: LUPUS NEPHRITIS
     Route: 048
     Dates: start: 20110224, end: 20120930
  30. COMELIAN [Concomitant]
     Active Substance: DILAZEP
     Route: 048
     Dates: start: 20130517, end: 20140611
  31. BREDININ [Concomitant]
     Active Substance: MIZORIBINE
     Indication: LUPUS NEPHRITIS
     Route: 048
     Dates: start: 20111107
  32. AMLODIPINE [Concomitant]
     Active Substance: AMLODIPINE BESYLATE
     Indication: PROPHYLAXIS
     Route: 048
     Dates: start: 20140818
  33. PREDNISOLONE. [Suspect]
     Active Substance: PREDNISOLONE
     Indication: LUPUS NEPHRITIS
     Route: 048
  34. PREDNISOLONE. [Suspect]
     Active Substance: PREDNISOLONE
     Route: 048
     Dates: start: 20080522, end: 20080604
  35. DEPAS [Concomitant]
     Active Substance: ETIZOLAM
     Indication: PRODUCT USED FOR UNKNOWN INDICATION
     Dosage: 0.5 MG, ONCE DAILY
     Route: 048
     Dates: end: 20080602
  36. FUNGIZONE [Concomitant]
     Active Substance: AMPHOTERICIN B
     Indication: PROPHYLAXIS
     Route: 048
     Dates: end: 20080714
  37. BLOPRESS [Concomitant]
     Active Substance: CANDESARTAN CILEXETIL
     Indication: PRODUCT USED FOR UNKNOWN INDICATION
     Route: 048
     Dates: end: 20080922
  38. BLOPRESS [Concomitant]
     Active Substance: CANDESARTAN CILEXETIL
     Route: 048
     Dates: start: 20080923, end: 20081020
  39. MICARDIS [Concomitant]
     Active Substance: TELMISARTAN
     Indication: LUPUS NEPHRITIS
     Route: 048
     Dates: start: 20110219
  40. LOXONIN [Concomitant]
     Active Substance: LOXOPROFEN SODIUM
     Indication: UPPER RESPIRATORY TRACT INFLAMMATION
     Route: 048
     Dates: start: 20081020, end: 20081026
  41. PREDNISOLONE. [Suspect]
     Active Substance: PREDNISOLONE
     Route: 048
     Dates: start: 20080605, end: 20080618
  42. PREDNISOLONE. [Suspect]
     Active Substance: PREDNISOLONE
     Route: 048
     Dates: start: 20080626, end: 20080716
  43. SELBEX [Concomitant]
     Active Substance: TEPRENONE
     Indication: PROPHYLAXIS
     Route: 048
     Dates: end: 20080922
  44. BLOPRESS [Concomitant]
     Active Substance: CANDESARTAN CILEXETIL
     Route: 048
     Dates: start: 20081021, end: 20090416
  45. NU-LOTAN [Concomitant]
     Active Substance: LOSARTAN POTASSIUM
     Indication: PRODUCT USED FOR UNKNOWN INDICATION
     Route: 048
     Dates: start: 20090417, end: 20091203
  46. MARZULENE-S [Concomitant]
     Active Substance: SODIUM GUALENATE
     Indication: PROPHYLAXIS
     Dosage: 1.0 G, ONCE DAILY
     Route: 048
     Dates: start: 20100724, end: 20110221
  47. AMLODIN [Concomitant]
     Active Substance: AMLODIPINE BESYLATE
     Indication: LUPUS NEPHRITIS
     Route: 048
     Dates: start: 20110219, end: 20110514

REACTIONS (8)
  - Upper respiratory tract inflammation [Recovered/Resolved]
  - Pharyngitis [Recovered/Resolved]
  - Premature delivery [Unknown]
  - Exposure during pregnancy [Unknown]
  - HELLP syndrome [Recovered/Resolved]
  - Ankle fracture [Recovered/Resolved]
  - Fall [Recovered/Resolved]
  - Breast swelling [Recovered/Resolved]

NARRATIVE: CASE EVENT DATE: 20081020
